FAERS Safety Report 11807852 (Version 1)
Quarter: 2015Q4

REPORT INFORMATION
  Report Type: Spontaneous
  Country: GB (occurrence: GB)
  Receive Date: 20151207
  Receipt Date: 20151207
  Transmission Date: 20160305
  Serious: Yes (Hospitalization)
  Sender: FDA-Public Use
  Company Number: GB-UCBSA-2015038948

PATIENT
  Age: 84 Year
  Sex: Female

DRUGS (4)
  1. ROTIGOTINE [Suspect]
     Active Substance: ROTIGOTINE
     Indication: PRODUCT USED FOR UNKNOWN INDICATION
     Dosage: UNKNOWN DOSE AND FREQUENCY
     Dates: start: 20150929, end: 20151008
  2. ROTIGOTINE [Suspect]
     Active Substance: ROTIGOTINE
     Dosage: UNKNOWN DOSE AND FREQUENCY
     Dates: start: 2015, end: 2015
  3. SINEMET PLUS [Suspect]
     Active Substance: CARBIDOPA\LEVODOPA
     Dosage: UNKNOWN DOSE AND FREQUENCY
     Route: 048
     Dates: start: 2015, end: 2015
  4. SINEMET PLUS [Suspect]
     Active Substance: CARBIDOPA\LEVODOPA
     Indication: PRODUCT USED FOR UNKNOWN INDICATION
     Dosage: UNKNOWN DOSE AND FREQUENCY
     Route: 048
     Dates: start: 2015, end: 2015

REACTIONS (4)
  - Intestinal obstruction [Unknown]
  - Drug administration error [Unknown]
  - Fall [Unknown]
  - Adverse event [Unknown]

NARRATIVE: CASE EVENT DATE: 2015
